FAERS Safety Report 4922679-8 (Version None)
Quarter: 2006Q1

REPORT INFORMATION
  Report Type: 
  Country: None (occurrence: None)
  Receive Date: 20060224
  Receipt Date: 20060214
  Transmission Date: 20060701
  Serious: Yes (Hospitalization)
  Sender: FDA-Public Use
  Company Number: US-ABBOTT-06P-163-0325752-00

PATIENT
  Age: 30 Year
  Sex: Female

DRUGS (4)
  1. HYDROCODONE BITARTRATE [Suspect]
     Indication: ANALGESIC EFFECT
  2. HYDROCODONE BITARTRATE [Suspect]
  3. CARISOPRODOL [Suspect]
     Indication: ANALGESIC EFFECT
  4. CARISOPRODOL [Suspect]

REACTIONS (2)
  - DRUG DEPENDENCE [None]
  - PANCREATITIS [None]
